FAERS Safety Report 17192661 (Version 1)
Quarter: 2019Q4

REPORT INFORMATION
  Report Type: Spontaneous
  Country: US (occurrence: US)
  Receive Date: 20191223
  Receipt Date: 20191223
  Transmission Date: 20200122
  Serious: No
  Sender: FDA-Public Use
  Company Number: US-SA-2019SA349754

PATIENT
  Age: 42 Year
  Sex: Female

DRUGS (1)
  1. FERRLECIT [Suspect]
     Active Substance: SODIUM FERRIC GLUCONATE COMPLEX
     Dosage: UNK
     Dates: start: 20191212, end: 20191212

REACTIONS (4)
  - Pruritus [Unknown]
  - Flank pain [Unknown]
  - Urticaria [Unknown]
  - Muscle tightness [Unknown]

NARRATIVE: CASE EVENT DATE: 201912
